FAERS Safety Report 6146821-9 (Version None)
Quarter: 2009Q2

REPORT INFORMATION
  Report Type: 
  Country: None (occurrence: None)
  Receive Date: 20090406
  Receipt Date: 20090406
  Transmission Date: 20091009
  Serious: Yes (Other)
  Sender: FDA-Public Use
  Company Number: None

PATIENT
  Age: 33 Year
  Sex: Female
  Weight: 63.5036 kg

DRUGS (1)
  1. DORYX [Suspect]
     Indication: ROSACEA
     Dosage: 1 TABLET DAILY PO
     Route: 048
     Dates: start: 20090101, end: 20090402

REACTIONS (2)
  - FOREIGN BODY TRAUMA [None]
  - PRODUCT QUALITY ISSUE [None]
